FAERS Safety Report 10249342 (Version 1)
Quarter: 2014Q2

REPORT INFORMATION
  Report Type: Spontaneous
  Country: IT (occurrence: IT)
  Receive Date: 20140620
  Receipt Date: 20140620
  Transmission Date: 20141212
  Serious: Yes (Other)
  Sender: FDA-Public Use
  Company Number: IT-PFIZER INC-2014169721

PATIENT
  Age: 51 Year
  Sex: Male

DRUGS (7)
  1. ZELDOX [Suspect]
     Indication: PARKINSON^S DISEASE
     Dosage: 2 DF, DAILY
     Route: 048
     Dates: start: 20140101
  2. AKINETON [Interacting]
     Indication: PARKINSON^S DISEASE
     Dosage: 1 DF, DAILY
     Route: 048
     Dates: start: 20140101
  3. BISOPROLOL FUMARATE [Concomitant]
     Dosage: 2.5 MG, UNK
     Route: 048
  4. TOLEP [Concomitant]
     Dosage: 2 DF, UNK
     Route: 048
  5. KRUDIPIN [Concomitant]
     Dosage: UNK
     Route: 048
  6. EN [Concomitant]
     Dosage: UNK
     Route: 048
  7. UROFLUS [Concomitant]
     Dosage: UNK
     Route: 048

REACTIONS (4)
  - Drug interaction [Recovering/Resolving]
  - Urinary retention [Recovering/Resolving]
  - Benign prostatic hyperplasia [Recovering/Resolving]
  - Dysuria [Recovering/Resolving]
